FAERS Safety Report 8126765 (Version 2)
Quarter: 2014Q4

REPORT INFORMATION
  Report Type: Spontaneous
  Country: FR (occurrence: None)
  Receive Date: 20110826
  Receipt Date: 20141208
  Transmission Date: 20150529
  Serious: Yes (Other)
  Sender: FDA-Public Use
  Company Number: 121754

PATIENT
  Age: 59 Year
  Sex: Male

DRUGS (4)
  1. CIFLOX [Suspect]
     Active Substance: CIPROFLOXACIN
     Indication: PYREXIA
     Route: 042
     Dates: start: 200811
  2. MYLOTARG [Suspect]
     Active Substance: GEMTUZUMAB OZOGAMICIN
     Indication: ACUTE LEUKAEMIA
     Route: 042
     Dates: start: 20081117, end: 20081117
  3. ARACYTINE [Suspect]
     Active Substance: CYTARABINE
     Indication: ACUTE MYELOID LEUKAEMIA
     Route: 041
     Dates: start: 20081114, end: 20081117
  4. CERUBIDINE [Suspect]
     Active Substance: DAUNORUBICIN HYDROCHLORIDE
     Indication: ACUTE LEUKAEMIA
     Dosage: 70MG, 1X/DAY, IV
     Route: 042
     Dates: start: 20081114, end: 20081116

REACTIONS (2)
  - Pyrexia [None]
  - Status epilepticus [None]

NARRATIVE: CASE EVENT DATE: 200811
